FAERS Safety Report 16054351 (Version 4)
Quarter: 2019Q2

REPORT INFORMATION
  Report Type: Spontaneous
  Country: JP (occurrence: JP)
  Receive Date: 20190309
  Receipt Date: 20190522
  Transmission Date: 20190711
  Serious: Yes (Other)
  Sender: FDA-Public Use
  Company Number: JP-ABBVIE-19K-087-2696020-00

PATIENT
  Age: 80 Year
  Sex: Female
  Weight: 53 kg

DRUGS (1)
  1. MAVIRET [Suspect]
     Active Substance: GLECAPREVIR\PIBRENTASVIR
     Indication: CHRONIC HEPATITIS C
     Route: 048
     Dates: start: 20190220, end: 20190305

REACTIONS (7)
  - Feeling abnormal [Unknown]
  - Generalised erythema [Recovered/Resolved]
  - Erythema multiforme [Recovered/Resolved]
  - Visual impairment [Recovering/Resolving]
  - Sensory disturbance [Recovering/Resolving]
  - Pruritus generalised [Unknown]
  - Paraesthesia oral [Recovering/Resolving]

NARRATIVE: CASE EVENT DATE: 20190303
